FAERS Safety Report 4517880-1 (Version None)
Quarter: 2004Q4

REPORT INFORMATION
  Report Type: 
  Country: None (occurrence: None)
  Receive Date: 20041203
  Receipt Date: 20041101
  Transmission Date: 20050328
  Serious: Yes (Life-Threatening, Hospitalization, Disabling)
  Sender: FDA-Public Use
  Company Number: US-MERCK-0411USA00202

PATIENT
  Age: 95 Year
  Sex: Female
  Weight: 51 kg

DRUGS (11)
  1. VIOXX [Suspect]
     Indication: LUMBAR SPINAL STENOSIS
     Route: 048
     Dates: start: 20021024, end: 20040901
  2. DILTIAZEM HYDROCHLORIDE [Concomitant]
     Route: 065
  3. SYNTHROID [Concomitant]
     Route: 065
  4. IMDUR [Concomitant]
     Route: 065
  5. PROTONIX [Concomitant]
     Route: 065
  6. DIGITEK [Concomitant]
     Route: 065
  7. DARVOCET-N 100 [Concomitant]
     Route: 065
  8. PRILOSEC [Concomitant]
     Route: 065
  9. TIAZAC [Concomitant]
     Route: 065
  10. NEXIUM [Concomitant]
     Route: 065
  11. COZAAR [Concomitant]
     Route: 048

REACTIONS (8)
  - AORTIC VALVE CALCIFICATION [None]
  - AORTIC VALVE INCOMPETENCE [None]
  - CHEST PAIN [None]
  - MITRAL VALVE DISEASE [None]
  - PNEUMONIA ASPIRATION [None]
  - PULMONARY VALVE INCOMPETENCE [None]
  - TRICUSPID VALVE INCOMPETENCE [None]
  - VENTRICULAR HYPERTROPHY [None]
